FAERS Safety Report 17578252 (Version 1)
Quarter: 2020Q1

REPORT INFORMATION
  Report Type: Spontaneous
  Country: US (occurrence: US)
  Receive Date: 20200324
  Receipt Date: 20200324
  Transmission Date: 20200409
  Serious: Yes (Other)
  Sender: FDA-Public Use
  Company Number: US-CELGENEUS-USA-20200305517

PATIENT
  Age: 71 Year
  Sex: Female

DRUGS (5)
  1. OTEZLA [Suspect]
     Active Substance: APREMILAST
     Indication: PSORIASIS
     Dosage: 60 MILLIGRAM
     Route: 048
     Dates: start: 2017
  2. BENZONATATE. [Concomitant]
     Active Substance: BENZONATATE
     Indication: LOWER RESPIRATORY TRACT INFECTION
     Route: 065
     Dates: start: 202001
  3. LORATADINE. [Concomitant]
     Active Substance: LORATADINE
     Indication: LOWER RESPIRATORY TRACT INFECTION
     Route: 065
     Dates: start: 202001
  4. CETRIZINE [Concomitant]
     Active Substance: CETIRIZINE HYDROCHLORIDE
     Indication: LOWER RESPIRATORY TRACT INFECTION
     Route: 065
     Dates: start: 202001
  5. STEROIDS [Concomitant]
     Active Substance: UNSPECIFIED INGREDIENT
     Indication: LOWER RESPIRATORY TRACT INFECTION
     Route: 065
     Dates: start: 202001

REACTIONS (5)
  - Lower respiratory tract infection [Unknown]
  - Palpitations [Unknown]
  - Muscle disorder [Unknown]
  - Lower respiratory tract congestion [Unknown]
  - Tendonitis [Unknown]

NARRATIVE: CASE EVENT DATE: 202001
